FAERS Safety Report 15779364 (Version 3)
Quarter: 2019Q1

REPORT INFORMATION
  Report Type: Spontaneous
  Country: US (occurrence: US)
  Receive Date: 20190101
  Receipt Date: 20190125
  Transmission Date: 20190417
  Serious: No
  Sender: FDA-Public Use
  Company Number: US-GLAXOSMITHKLINE-US2018233564

PATIENT

DRUGS (1)
  1. ABREVA [Suspect]
     Active Substance: DOCOSANOL
     Indication: RASH
     Dosage: UNK

REACTIONS (3)
  - Product use in unapproved indication [Unknown]
  - Rash [Unknown]
  - Product complaint [Unknown]
